FAERS Safety Report 6061890-2 (Version None)
Quarter: 2009Q1

REPORT INFORMATION
  Report Type: 
  Country: None (occurrence: None)
  Receive Date: 20090202
  Receipt Date: 20090121
  Transmission Date: 20090719
  Serious: Yes (Disabling)
  Sender: FDA-Public Use
  Company Number: PHEH2007US13559

PATIENT
  Sex: Female

DRUGS (2)
  1. ZELNORM [Suspect]
     Dosage: UNK, UNK
     Dates: start: 20070124, end: 20070301
  2. LORTAB [Suspect]

REACTIONS (12)
  - ACTIVITIES OF DAILY LIVING IMPAIRED [None]
  - CHEST PAIN [None]
  - DIZZINESS [None]
  - DYSPNOEA [None]
  - GAIT DISTURBANCE [None]
  - HEADACHE [None]
  - HEART RATE INCREASED [None]
  - IMPAIRED WORK ABILITY [None]
  - MALAISE [None]
  - MUSCULAR WEAKNESS [None]
  - PAIN IN EXTREMITY [None]
  - SPEECH DISORDER [None]
